FAERS Safety Report 5884894-9 (Version None)
Quarter: 2008Q3

REPORT INFORMATION
  Report Type: 
  Country: None (occurrence: None)
  Receive Date: 20080915
  Receipt Date: 20080915
  Transmission Date: 20090109
  Serious: Yes (Death, Life-Threatening, Hospitalization)
  Sender: FDA-Public Use
  Company Number: None

PATIENT
  Age: 46 Year
  Sex: Female
  Weight: 69.9 kg

DRUGS (4)
  1. BEVACIZUMAB, GENENTECH, INC. [Suspect]
     Indication: BREAST CANCER
     Dosage: 15MG/KG IV Q 3 WEEKS
     Route: 042
     Dates: start: 20070926, end: 20080730
  2. CAPECITABINE, ROCHE. [Suspect]
     Indication: BREAST CANCER
     Dosage: 4000MG PO QD 7ON 7OFF
     Route: 048
     Dates: start: 20070926, end: 20080305
  3. ATIVAN [Concomitant]
  4. EFFEXOR [Concomitant]

REACTIONS (8)
  - ABDOMINAL DISTENSION [None]
  - CARDIAC FAILURE [None]
  - DYSPNOEA [None]
  - FATIGUE [None]
  - MALAISE [None]
  - NAUSEA [None]
  - PRODUCTIVE COUGH [None]
  - VOMITING [None]
